FAERS Safety Report 24890797 (Version 1)
Quarter: 2025Q1

REPORT INFORMATION
  Report Type: Spontaneous
  Country: NO (occurrence: NO)
  Receive Date: 20250127
  Receipt Date: 20250127
  Transmission Date: 20250409
  Serious: Yes (Other)
  Sender: SANDOZ
  Company Number: NO-NOMAADVRE-PASRAPP-2025-Vama3g

PATIENT
  Age: 60 Year
  Sex: Female
  Weight: 69 kg

DRUGS (2)
  1. ESTRADIOL [Suspect]
     Active Substance: ESTRADIOL
     Indication: Menopausal symptoms
     Route: 062
     Dates: start: 2024, end: 202412
  2. PROGESTERONE [Concomitant]
     Active Substance: PROGESTERONE
     Indication: Menopausal symptoms
     Dosage: 100 MG, QD
     Route: 065
     Dates: start: 2016

REACTIONS (2)
  - Postmenopausal haemorrhage [Recovered/Resolved]
  - Dysmenorrhoea [Recovered/Resolved]

NARRATIVE: CASE EVENT DATE: 20240801
